FAERS Safety Report 9538707 (Version 2)
Quarter: 2013Q4

REPORT INFORMATION
  Report Type: Spontaneous
  Country: US (occurrence: None)
  Receive Date: 20130917
  Receipt Date: 20131024
  Transmission Date: 20140711
  Serious: Yes (Other)
  Sender: FDA-Public Use
  Company Number: 2013-US-000250

PATIENT
  Age: 42 Year
  Sex: Female
  Weight: 52.2 kg

DRUGS (10)
  1. XYREM (SODIUM OXYBATE) ORAL SOLUTION, 500MG.ML [Suspect]
     Indication: NARCOLEPSY
     Route: 048
     Dates: start: 201211
  2. PROVIGIL [Suspect]
  3. WELLBUTRIN [Concomitant]
  4. CYMBALTA [Concomitant]
  5. MULTIVITAMINS [Concomitant]
  6. BLACK COHASH [Concomitant]
  7. DEPO-ESTRADIOL [Suspect]
     Indication: PRODUCT USED FOR UNKNOWN INDICATION
  8. LOSARTAN [Concomitant]
  9. PRILOSEC (OMEPRAZOLE) [Concomitant]
  10. CELEXA (CITALOPRAM HYDROBROMIDE) [Concomitant]

REACTIONS (1)
  - Thrombosis [None]
